FAERS Safety Report 9384998 (Version 1)
Quarter: 2013Q3

REPORT INFORMATION
  Report Type: Spontaneous
  Country: US (occurrence: US)
  Receive Date: 20130705
  Receipt Date: 20130705
  Transmission Date: 20140515
  Serious: No
  Sender: FDA-Public Use
  Company Number: US-GLAXOSMITHKLINE-A1022679A

PATIENT
  Age: 70 Year
  Sex: Female

DRUGS (2)
  1. BENLYSTA [Suspect]
     Indication: SYSTEMIC LUPUS ERYTHEMATOSUS
     Route: 042
  2. MULTIPLE MEDICATIONS [Concomitant]

REACTIONS (6)
  - Dermatitis [Not Recovered/Not Resolved]
  - Pruritus [Unknown]
  - Ill-defined disorder [Unknown]
  - Dysphagia [Unknown]
  - Arthralgia [Unknown]
  - Headache [Unknown]
